FAERS Safety Report 4561119-8 (Version None)
Quarter: 2005Q1

REPORT INFORMATION
  Report Type: 
  Country: None (occurrence: None)
  Receive Date: 20050121
  Receipt Date: 20050106
  Transmission Date: 20050727
  Serious: Yes (Death, Life-Threatening)
  Sender: FDA-Public Use
  Company Number: US-2005-000128

PATIENT
  Age: 51 Year
  Sex: Female
  Weight: 111.6 kg

DRUGS (7)
  1. ULTRAVIST 300 [Suspect]
     Indication: COMPUTERISED TOMOGRAM
     Dosage: 150 MG, 1 DOSE, INTRAVENOUS
     Route: 042
     Dates: start: 20041130, end: 20041130
  2. MOTRIN [Concomitant]
  3. ALBUTEROL [Concomitant]
  4. LASIX [Concomitant]
  5. HYDROCHLOROTHIAZIDE [Concomitant]
  6. CARDIZEM [Concomitant]
  7. ATROVENT [Concomitant]

REACTIONS (4)
  - CARDIO-RESPIRATORY ARREST [None]
  - COMA [None]
  - MICTURITION URGENCY [None]
  - MOBILITY DECREASED [None]
